FAERS Safety Report 25001208 (Version 1)
Quarter: 2025Q1

REPORT INFORMATION
  Report Type: Spontaneous
  Country: US (occurrence: US)
  Receive Date: 20250223
  Receipt Date: 20250223
  Transmission Date: 20250409
  Serious: No
  Sender: ELI LILLY AND COMPANY
  Company Number: US-ELI_LILLY_AND_COMPANY-US202502015558

PATIENT
  Age: 82 Year
  Sex: Female

DRUGS (4)
  1. BASAGLAR [Suspect]
     Active Substance: INSULIN GLARGINE
     Indication: Diabetes mellitus
     Dosage: 14 MG, EACH MORNING
     Route: 065
     Dates: start: 202410
  2. BASAGLAR [Suspect]
     Active Substance: INSULIN GLARGINE
     Dosage: 26 MG, EACH EVENING
     Route: 065
     Dates: start: 202410
  3. BASAGLAR [Suspect]
     Active Substance: INSULIN GLARGINE
     Dosage: 14 MG, EACH MORNING
     Route: 065
  4. BASAGLAR [Suspect]
     Active Substance: INSULIN GLARGINE
     Dosage: 26 MG, EACH EVENING
     Route: 065

REACTIONS (5)
  - Blood glucose increased [Unknown]
  - Hypoacusis [Unknown]
  - Blood pressure increased [Unknown]
  - Accidental underdose [Unknown]
  - Inappropriate schedule of product administration [Unknown]
